FAERS Safety Report 5768403-0 (Version None)
Quarter: 2008Q2

REPORT INFORMATION
  Report Type: 
  Country: None (occurrence: None)
  Receive Date: 20080612
  Receipt Date: 20080304
  Transmission Date: 20081010
  Serious: No
  Sender: FDA-Public Use
  Company Number: US-ABBOTT-08P-163-0440896-00

PATIENT
  Sex: Female

DRUGS (2)
  1. HUMIRA [Suspect]
     Indication: DRUG USE FOR UNKNOWN INDICATION
     Route: 058
     Dates: start: 20080123, end: 20080304
  2. HUMIRA [Suspect]
     Route: 058
     Dates: start: 20080304

REACTIONS (1)
  - LOWER RESPIRATORY TRACT INFECTION [None]
